FAERS Safety Report 8677490 (Version 2)
Quarter: 2012Q4

REPORT INFORMATION
  Report Type: 
  Country: DE (occurrence: DE)
  Receive Date: 20120723
  Receipt Date: 20120830
  Transmission Date: 20130627
  Serious: Yes (Other)
  Sender: FDA-Public Use
  Company Number: PHHY2012DE062340

PATIENT
  Sex: Male

DRUGS (1)
  1. DAFIRO [Suspect]

REACTIONS (1)
  - Pleural effusion [Unknown]
